FAERS Safety Report 8962717 (Version 2)
Quarter: 2013Q1

REPORT INFORMATION
  Report Type: Report from Study
  Country: US (occurrence: US)
  Receive Date: 20121214
  Receipt Date: 20130107
  Transmission Date: 20140127
  Serious: No
  Sender: FDA-Public Use
  Company Number: US-VERTEX PHARMACEUTICALS INC.-2012-025673

PATIENT
  Age: 51 Year
  Sex: Male
  Weight: 81 kg

DRUGS (21)
  1. VX-950 (TELAPREVIR) [Suspect]
     Indication: HEPATITIS C
     Route: 048
  2. RIBAVIRIN [Suspect]
     Indication: HEPATITIS C
     Dosage: 200 MG, UNK
  3. PEGASYS [Suspect]
     Indication: HEPATITIS C
     Dosage: 180 ?G, UNK
  4. ZYRTEC [Concomitant]
     Dosage: 10 MG, UNK
  5. DICYCLOMINE                        /00068601/ [Concomitant]
     Dosage: 10 MG, UNK
  6. CITALOPRAM [Concomitant]
     Dosage: 10 MG, UNK
  7. METFORMIN [Concomitant]
     Dosage: 1000 MG, UNK
  8. METOPROL [Concomitant]
     Dosage: 50 MG, UNK
  9. VALTREX [Concomitant]
     Dosage: 500 MG, UNK
  10. IBUPROFEN [Concomitant]
     Dosage: 200 MG, UNK
  11. OMEPRAZOLE [Concomitant]
     Dosage: 20 MG, UNK
  12. CYCLOBENZAPRIN HCL [Concomitant]
     Dosage: 10 MG, UNK
  13. TRAZODONE [Concomitant]
     Dosage: 50 MG, UNK
  14. LOSARTAN + HIDROCLOROTIAZIDA [Concomitant]
  15. LANTUS [Concomitant]
     Dosage: 100 ML, UNK
  16. MULTIVITAMIN                       /00097801/ [Concomitant]
  17. CHLORDIAZEPOX [Concomitant]
     Dosage: 25 MG, UNK
  18. GABAPENTIN [Concomitant]
     Dosage: 100 MG, UNK
  19. MIRTAZAPINE [Concomitant]
     Dosage: 30 MG, UNK
  20. ALBUTEROL                          /00139501/ [Concomitant]
     Dosage: 90 ?G, UNK
  21. ADVAIR DISKU AER [Concomitant]
     Dosage: 500/50

REACTIONS (16)
  - Rheumatoid arthritis [Unknown]
  - Fibromyalgia [Unknown]
  - Chest pain [Unknown]
  - Hypertension [Unknown]
  - Muscle spasms [Unknown]
  - Amnesia [Unknown]
  - Mood swings [Unknown]
  - Dizziness [Unknown]
  - Epistaxis [Unknown]
  - Anger [Unknown]
  - Fatigue [Unknown]
  - Haemorrhoids [Unknown]
  - Rectal haemorrhage [Unknown]
  - Anorectal discomfort [Unknown]
  - Anal pruritus [Unknown]
  - Nausea [Unknown]
